FAERS Safety Report 10249895 (Version 1)
Quarter: 2014Q2

REPORT INFORMATION
  Report Type: Spontaneous
  Country: US (occurrence: US)
  Receive Date: 20140620
  Receipt Date: 20140620
  Transmission Date: 20141212
  Serious: No
  Sender: FDA-Public Use
  Company Number: US-PFIZER INC-2014166943

PATIENT
  Sex: Male

DRUGS (2)
  1. LYRICA [Suspect]
     Indication: HERPES ZOSTER
     Dosage: UNK
  2. HYDROCODONE [Concomitant]
     Dosage: UNK

REACTIONS (5)
  - Back pain [Unknown]
  - Arthralgia [Unknown]
  - Spinal column stenosis [Unknown]
  - Lung disorder [Unknown]
  - Inflammation [Unknown]
